FAERS Safety Report 8267229-6 (Version None)
Quarter: 2012Q2

REPORT INFORMATION
  Report Type: 
  Country: None (occurrence: None)
  Receive Date: 20120404
  Receipt Date: 20120322
  Transmission Date: 20120825
  Serious: Yes (Other)
  Sender: FDA-Public Use
  Company Number: DSJ-2012-05657

PATIENT
  Sex: Male

DRUGS (1)
  1. BENICAR [Suspect]
     Indication: HYPERTENSION
     Dosage: 20 MG (20 MG, 1 IN 1 D),PER ORAL
     Dates: start: 20090101, end: 20120313

REACTIONS (3)
  - DRUG DOSE OMISSION [None]
  - DRUG ADMINISTRATION ERROR [None]
  - FLUID RETENTION [None]
